FAERS Safety Report 12282949 (Version 4)
Quarter: 2016Q3

REPORT INFORMATION
  Report Type: Spontaneous
  Country: US (occurrence: US)
  Receive Date: 20160419
  Receipt Date: 20160801
  Transmission Date: 20161109
  Serious: Yes (Hospitalization)
  Sender: FDA-Public Use
  Company Number: US-PFIZER INC-2016208198

PATIENT
  Age: 42 Year
  Sex: Male
  Weight: 89 kg

DRUGS (19)
  1. TIKOSYN [Suspect]
     Active Substance: DOFETILIDE
     Indication: ATRIAL FLUTTER
     Dosage: 125 UG, 2X/DAY
     Route: 048
     Dates: start: 20160318
  2. LORAZEPAM. [Concomitant]
     Active Substance: LORAZEPAM
     Indication: ANXIETY
     Dosage: 1 MG, 2X/DAY
     Route: 048
  3. FLONASE [Concomitant]
     Active Substance: FLUTICASONE PROPIONATE
     Dosage: 50 UG, UNK
  4. TOPROL XL [Concomitant]
     Active Substance: METOPROLOL SUCCINATE
     Dosage: 75 MG, DAILY, (DO NOT CRUSH OR CHEW)
     Route: 048
  5. FLONASE [Concomitant]
     Active Substance: FLUTICASONE PROPIONATE
     Indication: HYPERSENSITIVITY
     Dosage: UNK, 1X/DAY (1 SQUIRT IN EACH NOSTRIL)
     Route: 045
  6. AMOXICILLIN. [Concomitant]
     Active Substance: AMOXICILLIN
     Indication: SINUSITIS
     Dosage: 875 MG, 2X/DAY, (TAKE ONE IN THE EVENING OF 4/19, THEN 2 EACH DAY AFTERWARD UNTIL YOU RUN OUT.)
     Route: 048
  7. PROBIOTIC [Concomitant]
     Active Substance: PROBIOTICS NOS
     Indication: GASTROINTESTINAL DISORDER
     Dosage: 1 DF, DAILY
  8. METOPROLOL. [Concomitant]
     Active Substance: METOPROLOL
     Indication: ARRHYTHMIA
     Dosage: 25 MG
     Dates: end: 201603
  9. WARFARIN [Concomitant]
     Active Substance: WARFARIN
     Indication: ATRIAL FLUTTER
     Dosage: 5 MG, DAILY, (TAKE 10 MG TUES AND THURS AND 5 MG ALL OTHER DAYS.)
  10. HYDROXYZINE HCL [Concomitant]
     Active Substance: HYDROXYZINE HYDROCHLORIDE
     Dosage: 25 MG, AS NEEDED, (25 MG BY MOUTH EVERY 8)
     Route: 048
  11. TIKOSYN [Suspect]
     Active Substance: DOFETILIDE
     Dosage: 125 UG, 2X/DAY
     Route: 048
     Dates: start: 20160416
  12. METOPROLOL. [Concomitant]
     Active Substance: METOPROLOL
     Indication: HEART RATE
     Dosage: 75 MG, 2X/DAY
     Route: 048
     Dates: start: 201603
  13. WARFARIN [Concomitant]
     Active Substance: WARFARIN
     Indication: ANTICOAGULANT THERAPY
     Dosage: UNK (TAKES 10MG ON TUESDAY, THURSDAY, AND SATURDAY TAKES 5MG ON MONDAY,WED, FRI AND SUNDAY)
  14. BENADRYL [Concomitant]
     Active Substance: DIPHENHYDRAMINE HYDROCHLORIDE
     Indication: SLEEP DISORDER
     Dosage: 2 DF, 1X/DAY (AT NIGHT)
     Route: 048
  15. METOPROLOL. [Concomitant]
     Active Substance: METOPROLOL
     Dosage: 50 MG, 1X/DAY
     Route: 048
     Dates: start: 201603
  16. MULTIVITAMIN /00097801/ [Concomitant]
     Active Substance: VITAMINS
     Indication: SUPPLEMENTATION THERAPY
     Dosage: 2 DF, 1X/DAY
     Route: 048
  17. ATIVAN [Concomitant]
     Active Substance: LORAZEPAM
     Indication: ANXIETY
     Dosage: 1 MG, 2X/DAY
  18. WARFARIN [Concomitant]
     Active Substance: WARFARIN
     Indication: BLOOD DISORDER
     Dosage: UNK, DAILY
     Dates: start: 201603
  19. TOPROL XL [Concomitant]
     Active Substance: METOPROLOL SUCCINATE
     Indication: ATRIAL FLUTTER
     Dosage: 25 MG, UNK
     Route: 048

REACTIONS (8)
  - Atrial flutter [Recovered/Resolved]
  - Influenza [Not Recovered/Not Resolved]
  - Sinusitis [Recovering/Resolving]
  - Ventricular tachycardia [Unknown]
  - Ear infection [Not Recovered/Not Resolved]
  - Anxiety [Unknown]
  - Dizziness [Recovered/Resolved]
  - Cyst [Not Recovered/Not Resolved]

NARRATIVE: CASE EVENT DATE: 20160409
